FAERS Safety Report 17464233 (Version 1)
Quarter: 2020Q1

REPORT INFORMATION
  Report Type: Report from Study
  Country: None (occurrence: US)
  Receive Date: 20200226
  Receipt Date: 20200226
  Transmission Date: 20200409
  Serious: Yes (Other)
  Sender: FDA-Public Use
  Company Number: US-ABBVIE-19K-163-2997844-00

PATIENT
  Age: 57 Year
  Sex: Female

DRUGS (4)
  1. METHOTREXATE. [Concomitant]
     Active Substance: METHOTREXATE
     Indication: RHEUMATOID ARTHRITIS
     Route: 065
  2. HUMIRA [Suspect]
     Active Substance: ADALIMUMAB
     Indication: RHEUMATOID ARTHRITIS
     Route: 058
     Dates: start: 20200107
  3. HUMIRA [Suspect]
     Active Substance: ADALIMUMAB
     Indication: RHEUMATOID ARTHRITIS
     Route: 058
     Dates: start: 2014, end: 2017
  4. ANASTROZOLE. [Concomitant]
     Active Substance: ANASTROZOLE
     Indication: HORMONE THERAPY
     Route: 065

REACTIONS (8)
  - Osteoporosis [Unknown]
  - Rheumatoid arthritis [Not Recovered/Not Resolved]
  - Breast cyst [Recovering/Resolving]
  - Breast cancer [Recovering/Resolving]
  - Mass [Recovering/Resolving]
  - Osteopenia [Unknown]
  - Influenza [Recovering/Resolving]
  - Breast mass [Recovering/Resolving]

NARRATIVE: CASE EVENT DATE: 2019
